FAERS Safety Report 20136964 (Version 1)
Quarter: 2021Q4

REPORT INFORMATION
  Report Type: Spontaneous
  Country: US (occurrence: US)
  Receive Date: 20211201
  Receipt Date: 20211201
  Transmission Date: 20220304
  Serious: Yes (Death, Hospitalization)
  Sender: FDA-Public Use
  Company Number: US-ELI_LILLY_AND_COMPANY-US202112000437

PATIENT
  Age: 91 Year
  Sex: Female

DRUGS (2)
  1. ETESEVIMAB [Suspect]
     Active Substance: ETESEVIMAB
     Indication: COVID-19
     Dosage: UNK, SINGLE
     Route: 065
     Dates: start: 20211116, end: 20211116
  2. BAMLANIVIMAB [Suspect]
     Active Substance: BAMLANIVIMAB
     Indication: COVID-19
     Dosage: UNK, SINGLE
     Route: 065
     Dates: start: 20211116, end: 20211116

REACTIONS (8)
  - Death [Fatal]
  - Dyspnoea [Unknown]
  - Hypoxia [Unknown]
  - Decreased appetite [Unknown]
  - Asthenia [Unknown]
  - Atrial fibrillation [Recovered/Resolved]
  - Acute respiratory failure [Unknown]
  - Bacterial infection [Unknown]
